FAERS Safety Report 13861859 (Version 3)
Quarter: 2017Q3

REPORT INFORMATION
  Report Type: Report from Study
  Country: CA (occurrence: CA)
  Receive Date: 20170811
  Receipt Date: 20170914
  Transmission Date: 20171127
  Serious: Yes (Hospitalization)
  Sender: FDA-Public Use
  Company Number: CA-HLSUS-2017-CA-000878

PATIENT
  Age: 32 Year
  Sex: Male

DRUGS (6)
  1. DALMANE [Concomitant]
     Active Substance: FLURAZEPAM HYDROCHLORIDE
     Dosage: 15NG QHS
     Route: 048
  2. OLANZAPINE. [Concomitant]
     Active Substance: OLANZAPINE
     Dosage: 5MG BID
     Route: 048
  3. LITHIUM. [Concomitant]
     Active Substance: LITHIUM
     Dosage: 900MG QHS
     Route: 048
  4. CLOZARIL [Suspect]
     Active Substance: CLOZAPINE
     Indication: PRODUCT USED FOR UNKNOWN INDICATION
     Dosage: 200MG QAM + 200MG QNOON + 100MG QSUPER +300MG QHS
     Route: 048
     Dates: start: 2008
  5. BISPROLOL [Concomitant]
     Active Substance: BISOPROLOL
     Dosage: 2.5MG BID
     Route: 048
  6. INVEGA SUSTENNA [Concomitant]
     Active Substance: PALIPERIDONE PALMITATE
     Dosage: 150MG Q 28 DAYS
     Route: 030

REACTIONS (6)
  - Pneumonia [Recovered/Resolved]
  - Blood urine present [Unknown]
  - Neutrophilia [Unknown]
  - Leukocytosis [Unknown]
  - Diarrhoea [Unknown]
  - Empyema [Recovered/Resolved]

NARRATIVE: CASE EVENT DATE: 20170803
